FAERS Safety Report 8199194-4 (Version None)
Quarter: 2012Q1

REPORT INFORMATION
  Report Type: 
  Country: None (occurrence: None)
  Receive Date: 20120306
  Receipt Date: 20120224
  Transmission Date: 20120608
  Serious: Yes (Other)
  Sender: FDA-Public Use
  Company Number: AUR-APL-2012-01139

PATIENT
  Sex: Male

DRUGS (1)
  1. LOSARTAN POTASSIUM AND HYDROCHLOROTHIAZIDE [Suspect]
     Indication: PRODUCT USED FOR UNKNOWN INDICATION
     Dosage: 100/12.5 MG

REACTIONS (4)
  - APPARENT DEATH [None]
  - DYSGEUSIA [None]
  - TONGUE DISORDER [None]
  - FEELING ABNORMAL [None]
